FAERS Safety Report 4349882-2 (Version None)
Quarter: 2004Q2

REPORT INFORMATION
  Report Type: 
  Country: None (occurrence: None)
  Receive Date: 20040428
  Receipt Date: 20040428
  Transmission Date: 20050107
  Serious: Yes (Hospitalization)
  Sender: FDA-Public Use
  Company Number: None

PATIENT
  Age: 76 Year
  Sex: Male
  Weight: 96.1626 kg

DRUGS (4)
  1. LEUKINE [Suspect]
     Indication: RENAL CELL CARCINOMA STAGE UNSPECIFIED
     Dosage: 250 MG/M2 QD SQ
     Route: 058
     Dates: start: 20040413
  2. DEXAMETHASONE [Suspect]
     Indication: RENAL CELL CARCINOMA STAGE UNSPECIFIED
     Dosage: 12 MG PO BID
     Route: 048
     Dates: start: 20040415
  3. LORA TAB [Concomitant]
  4. ANTI-CONSTIPATION [Concomitant]

REACTIONS (1)
  - THROMBOSIS [None]
